FAERS Safety Report 24014831 (Version 1)
Quarter: 2024Q2

REPORT INFORMATION
  Report Type: Spontaneous
  Country: FR (occurrence: FR)
  Receive Date: 20240626
  Receipt Date: 20240626
  Transmission Date: 20240715
  Serious: Yes (Death, Life-Threatening, Hospitalization, Other)
  Sender: FDA-Public Use
  Company Number: FR-ELERTE-202400010

PATIENT
  Age: 34 Year
  Sex: Male
  Weight: 79 kg

DRUGS (43)
  1. ACETAMINOPHEN [Interacting]
     Active Substance: ACETAMINOPHEN
     Indication: Product used for unknown indication
     Route: 065
  2. CLOTIAZEPAM [Interacting]
     Active Substance: CLOTIAZEPAM
     Indication: Product used for unknown indication
     Dosage: 3 TABLETS PER DAY FOR A MONTH
     Route: 048
     Dates: start: 20160830
  3. SKENAN [Interacting]
     Active Substance: MORPHINE SULFATE
     Indication: Back pain
     Dosage: 1 DOSAGE FORM, 1/DAY THERAPY START AND END DATE //2016
     Route: 048
  4. ZOPICLONE [Interacting]
     Active Substance: ZOPICLONE
     Indication: Psychiatric symptom
     Dosage: UNK
     Route: 048
  5. ZOPICLONE [Interacting]
     Active Substance: ZOPICLONE
     Indication: Depression
  6. OXAZEPAM [Concomitant]
     Active Substance: OXAZEPAM
     Indication: Depression
     Dosage: UNK
     Route: 048
  7. OXAZEPAM [Concomitant]
     Active Substance: OXAZEPAM
     Indication: Psychiatric symptom
  8. CODEINE PHOSPHATE\IBUPROFEN [Interacting]
     Active Substance: CODEINE PHOSPHATE\IBUPROFEN
     Indication: Back pain
     Dosage: 1 DF(1 DOSAGE FORMTHERAPY START DATE: //2016 THERAPY END DATE: //2016)
     Route: 048
     Dates: start: 20160902
  9. TRAMADOL HYDROCHLORIDE [Interacting]
     Active Substance: TRAMADOL HYDROCHLORIDE
     Indication: Back pain
     Dosage: UNK THERAPY START DATE: //2016 THERAPY END DATE: //2016
     Route: 048
     Dates: start: 20160903
  10. ETIFOXINE [Interacting]
     Active Substance: ETIFOXINE
     Indication: Product used for unknown indication
     Route: 065
     Dates: end: 20160908
  11. ALPRAZOLAM [Interacting]
     Active Substance: ALPRAZOLAM
     Indication: Depression
     Dosage: UNK
     Route: 048
  12. ALPRAZOLAM [Interacting]
     Active Substance: ALPRAZOLAM
     Indication: Psychiatric symptom
  13. ARTANE [Interacting]
     Active Substance: TRIHEXYPHENIDYL HYDROCHLORIDE
     Indication: Depression
     Dosage: UNK
     Route: 048
  14. ARTANE [Interacting]
     Active Substance: TRIHEXYPHENIDYL HYDROCHLORIDE
     Indication: Psychiatric symptom
  15. NORDAZEPAM [Interacting]
     Active Substance: NORDAZEPAM
     Indication: Product used for unknown indication
     Route: 065
  16. THIOCOLCHICOSIDE [Interacting]
     Active Substance: THIOCOLCHICOSIDE
     Indication: Product used for unknown indication
     Dosage: UNK
     Route: 048
  17. CLOBAZAM [Interacting]
     Active Substance: CLOBAZAM
     Indication: Product used for unknown indication
     Dosage: UNK
     Route: 048
     Dates: start: 20160824, end: 20160908
  18. KETAMINE [Interacting]
     Active Substance: KETAMINE
     Indication: Back pain
     Dosage: UNK?THERAPY START DATE: //2016?THERAPY END DATE: //2016
     Route: 065
  19. MIANSERIN HYDROCHLORIDE [Interacting]
     Active Substance: MIANSERIN HYDROCHLORIDE
     Indication: Back pain
     Dosage: THERAPY START DATE: //2016?THERAPY END DATE: //2016. ?THE DOCTOR PRESCRIBED HIM OVER A PERIOD BET...
     Route: 065
  20. MIANSERIN HYDROCHLORIDE [Interacting]
     Active Substance: MIANSERIN HYDROCHLORIDE
     Indication: Depression
  21. IBUPROFEN [Suspect]
     Active Substance: IBUPROFEN
     Indication: Back pain
     Dosage: UNK THERAPY START DATE //2016 THERAPY END DATE: //2016
     Route: 048
  22. VALIUM [Interacting]
     Active Substance: DIAZEPAM
     Indication: Psychiatric symptom
     Dosage: UNK
     Route: 048
     Dates: start: 20160902, end: 20160905
  23. VALIUM [Interacting]
     Active Substance: DIAZEPAM
     Indication: Depression
  24. TEMAZEPAM [Interacting]
     Active Substance: TEMAZEPAM
     Indication: Product used for unknown indication
     Route: 065
  25. OXYCONTIN [Interacting]
     Active Substance: OXYCODONE HYDROCHLORIDE
     Indication: Product used for unknown indication
  26. AMISULPRIDE [Interacting]
     Active Substance: AMISULPRIDE
     Indication: Depression
     Dosage: UNK
     Route: 048
  27. AMISULPRIDE [Interacting]
     Active Substance: AMISULPRIDE
     Indication: Psychiatric symptom
  28. PRAZEPAM [Interacting]
     Active Substance: PRAZEPAM
     Indication: Product used for unknown indication
     Route: 048
     Dates: start: 20160902
  29. AMISULPRIDE [Interacting]
     Active Substance: AMISULPRIDE
     Indication: Schizophrenia
  30. QUETIAPINE FUMARATE [Interacting]
     Active Substance: QUETIAPINE FUMARATE
     Indication: Product used for unknown indication
     Dosage: 300 MILLIGRAM, 1/DAY
     Route: 065
  31. OXAZEPAM [Interacting]
     Active Substance: OXAZEPAM
     Indication: Product used for unknown indication
     Route: 065
  32. NIFUROXAZIDE [Suspect]
     Active Substance: NIFUROXAZIDE
     Indication: Product used for unknown indication
     Dosage: UNK
     Route: 048
  33. ARTANE [Suspect]
     Active Substance: TRIHEXYPHENIDYL HYDROCHLORIDE
     Indication: Product used for unknown indication
     Dosage: UNK
     Route: 048
     Dates: start: 20160810, end: 20160908
  34. NAFRONYL [Interacting]
     Active Substance: NAFRONYL
     Indication: Product used for unknown indication
     Route: 065
  35. COCAINE [Interacting]
     Active Substance: COCAINE
     Indication: Product used for unknown indication
     Route: 065
  36. QUETIAPINE FUMARATE [Interacting]
     Active Substance: QUETIAPINE FUMARATE
     Indication: Product used for unknown indication
     Dosage: 1 TABLET AT NIGHT FOR ONE MONTH
     Route: 048
     Dates: start: 20160830
  37. ACETAMINOPHEN\CODEINE [Interacting]
     Active Substance: ACETAMINOPHEN\CODEINE
     Indication: Product used for unknown indication
     Route: 048
  38. MEPHENESIN [Interacting]
     Active Substance: MEPHENESIN
     Indication: Product used for unknown indication
     Route: 065
  39. CLONAZEPAM [Interacting]
     Active Substance: CLONAZEPAM
     Indication: Product used for unknown indication
     Dosage: 10 MILLIGRAM
  40. FENTANYL [Interacting]
     Active Substance: FENTANYL\FENTANYL CITRATE
     Indication: Back pain
     Dosage: THERAPY START DATE: //2016?THERAPY END DATE: //2016/DUROGESIC. ?THE DOCTOR PRESCRIBED HIM OVER A ...
     Route: 062
     Dates: start: 20160726
  41. PAROXETINE MESYLATE [Suspect]
     Active Substance: PAROXETINE MESYLATE
     Indication: Back pain
     Dosage: PAROXETINE 20 MG/UNK?THERAPY START DATE: //2016?THERAPY END DATE: //2016
     Route: 048
     Dates: start: 20160817, end: 20160908
  42. PAROXETINE HYDROCHLORIDE [Suspect]
     Active Substance: PAROXETINE HYDROCHLORIDE\PAROXETINE HYDROCHLORIDE ANHYDROUS
     Indication: Back pain
     Dosage: PAROXETINE 20 MG/UNK THERAPY START DATE: //2016 THERAPY END DATE: //2016
     Route: 048
     Dates: start: 20160829
  43. SKENAN [Interacting]
     Active Substance: MORPHINE SULFATE
     Indication: Back pain
     Route: 048
     Dates: start: 20160902, end: 20160905

REACTIONS (37)
  - Hyperglycaemia [Fatal]
  - Respiratory depression [Fatal]
  - Myocarditis [Fatal]
  - Cardiomyopathy [Fatal]
  - Encephalopathy [Fatal]
  - Labelled drug-drug interaction issue [Fatal]
  - Hepatitis acute [Fatal]
  - Somnolence [Fatal]
  - Coma [Fatal]
  - Accidental poisoning [Fatal]
  - Hepatic cytolysis [Fatal]
  - Overdose [Fatal]
  - Myocardial infarction [Fatal]
  - Cardiomyopathy [Fatal]
  - Coronary artery stenosis [Fatal]
  - Hypersomnia [Unknown]
  - Confusional state [Fatal]
  - Cardiac disorder [Fatal]
  - Leukocytosis [Unknown]
  - Coronary artery stenosis [Fatal]
  - Pulmonary oedema [Fatal]
  - Monocytosis [Unknown]
  - Drug screen false positive [Fatal]
  - Synovitis [Unknown]
  - Pancreas infection [Fatal]
  - Toxicity to various agents [Fatal]
  - Hepatic enzyme increased [Fatal]
  - Hepatic cytolysis [Fatal]
  - Jaundice [Fatal]
  - White blood cell count increased [Fatal]
  - Inflammation [Unknown]
  - Cholecystitis infective [Fatal]
  - Cardio-respiratory arrest [Fatal]
  - Respiratory depression [Fatal]
  - Gastric fluid analysis abnormal [Fatal]
  - Drug interaction [Fatal]
  - Drug level [Fatal]

NARRATIVE: CASE EVENT DATE: 20160902
